FAERS Safety Report 8557115-6 (Version None)
Quarter: 2012Q3

REPORT INFORMATION
  Report Type: 
  Country: None (occurrence: None)
  Receive Date: 20120801
  Receipt Date: 20120723
  Transmission Date: 20120928
  Serious: Yes (Hospitalization)
  Sender: FDA-Public Use
  Company Number: FR-EISAI INC-E7389-02719-SPO-FR

PATIENT
  Age: 68 Year
  Sex: Female

DRUGS (5)
  1. HALAVEN [Suspect]
     Indication: BREAST CANCER METASTATIC
     Dosage: UNKNOWN
     Route: 041
     Dates: start: 20120705
  2. BISOPROLOL FUMARATE [Concomitant]
     Route: 048
     Dates: end: 20120709
  3. METOCLOPRAMIDE [Concomitant]
     Route: 048
     Dates: start: 20120705
  4. METHYLPREDNISOLONE [Concomitant]
     Route: 065
     Dates: start: 20120705
  5. ONDANSETRON [Concomitant]
     Route: 065
     Dates: start: 20120705

REACTIONS (1)
  - HYPOTENSION [None]
